FAERS Safety Report 4867937-0 (Version None)
Quarter: 2005Q4

REPORT INFORMATION
  Report Type: 
  Country: None (occurrence: None)
  Receive Date: 20051227
  Receipt Date: 20051207
  Transmission Date: 20060501
  Serious: Yes (Other)
  Sender: FDA-Public Use
  Company Number: 2005ADE/DICLO-015

PATIENT
  Age: 30 Year

DRUGS (1)
  1. DICLOFENAC RATIOPHARM 50 TABLETTEN [Suspect]

REACTIONS (1)
  - ANGIONEUROTIC OEDEMA [None]
